FAERS Safety Report 6069073-7 (Version None)
Quarter: 2009Q1

REPORT INFORMATION
  Report Type: 
  Country: None (occurrence: None)
  Receive Date: 20090206
  Receipt Date: 20090202
  Transmission Date: 20090719
  Serious: Yes (Other)
  Sender: FDA-Public Use
  Company Number: US-ELI_LILLY_AND_COMPANY-US200812006028

PATIENT
  Sex: Female
  Weight: 78.005 kg

DRUGS (25)
  1. BYETTA [Suspect]
     Indication: TYPE 2 DIABETES MELLITUS
     Dosage: 5 UG, 2/D
     Route: 058
     Dates: start: 20060101, end: 20060101
  2. BYETTA [Suspect]
     Dosage: 10 UG, 2/D
     Route: 058
     Dates: start: 20060101
  3. BYETTA [Suspect]
     Dosage: 10 UG, 2/D
     Route: 058
  4. HUMALOG [Concomitant]
     Dosage: 30 U, EACH MORNING
  5. HUMALOG [Concomitant]
     Dosage: 25 U, EACH EVENING
  6. HUMALOG [Concomitant]
     Dosage: 35 U, OTHER
  7. HUMULIN N [Concomitant]
     Dosage: 65 U, OTHER
  8. LANTUS [Concomitant]
     Dosage: 60 U, EACH MORNING
  9. LIPITOR [Concomitant]
     Dosage: 80 MG, DAILY (1/D)
  10. NIASPAN [Concomitant]
     Dosage: 500 MG, DAILY (1/D)
  11. NEXIUM [Concomitant]
     Dosage: 40 MG, DAILY (1/D)
  12. PLAVIX [Concomitant]
     Dosage: UNK, DAILY (1/D)
  13. LYRICA [Concomitant]
     Dosage: 100 MG, DAILY (1/D)
  14. LYRICA [Concomitant]
     Dosage: UNK, 2/D
  15. ASPIRIN [Concomitant]
     Dosage: 325 MG, DAILY (1/D)
  16. SERTRALINE HYDROCHLORIDE [Concomitant]
     Dosage: 100 MG, DAILY (1/D)
  17. SERTRALINE HYDROCHLORIDE [Concomitant]
     Dosage: 100 UNK, 2/D
  18. OMEPRAZOLE [Concomitant]
     Dosage: 20 MG, DAILY (1/D)
  19. DIOVAN [Concomitant]
     Dosage: UNK, DAILY (1/D)
  20. FLAXSEED OIL [Concomitant]
     Dosage: UNK, DAILY (1/D)
  21. CETIRIZINE HCL [Concomitant]
     Dosage: UNK, AS NEEDED
  22. VITAMIN B COMPLEX CAP [Concomitant]
     Dosage: UNK, DAILY (1/D)
  23. MULTIPLE VITAMINS [Concomitant]
     Dosage: UNK, DAILY (1/D)
  24. NITROGLYCERIN [Concomitant]
     Dosage: UNK, UNKNOWN
  25. METFORMIN HCL [Concomitant]
     Dosage: UNK, 3/D

REACTIONS (6)
  - CARDIAC DISORDER [None]
  - CORONARY ARTERY OCCLUSION [None]
  - EYE HAEMORRHAGE [None]
  - INJECTION SITE SWELLING [None]
  - NASOPHARYNGITIS [None]
  - VISUAL ACUITY REDUCED [None]
